FAERS Safety Report 7291467-2 (Version None)
Quarter: 2011Q1

REPORT INFORMATION
  Report Type: 
  Country: None (occurrence: None)
  Receive Date: 20110214
  Receipt Date: 20110202
  Transmission Date: 20110831
  Serious: Yes (Hospitalization)
  Sender: FDA-Public Use
  Company Number: JP-ELI_LILLY_AND_COMPANY-JP201102001758

PATIENT
  Age: 25 Year
  Sex: Female

DRUGS (4)
  1. LENDORMIN [Concomitant]
     Indication: INSOMNIA
     Dosage: 0.25 MG, DAILY (1/D)
     Route: 048
  2. SEROQUEL [Concomitant]
     Indication: DEPRESSION
     Dosage: 2.5 MG, DAILY (1/D)
     Route: 048
  3. CYMBALTA [Suspect]
     Indication: DEPRESSION
     Route: 048
     Dates: end: 20101001
  4. CYMBALTA [Suspect]
     Dosage: 40 MG, DAILY (1/D)
     Route: 048
     Dates: start: 20101001, end: 20101101

REACTIONS (2)
  - SELF INJURIOUS BEHAVIOUR [None]
  - IMPULSE-CONTROL DISORDER [None]
